FAERS Safety Report 11230221 (Version 1)
Quarter: 2015Q3

REPORT INFORMATION
  Report Type: Spontaneous
  Country: ES (occurrence: ES)
  Receive Date: 20150701
  Receipt Date: 20150701
  Transmission Date: 20151125
  Serious: Yes (Life-Threatening, Hospitalization)
  Sender: FDA-Public Use
  Company Number: ES-009507513-0708USA00353

PATIENT
  Age: 83 Year
  Sex: Female

DRUGS (9)
  1. TORSEMIDE. [Suspect]
     Active Substance: TORSEMIDE
     Indication: ESSENTIAL HYPERTENSION
     Dosage: UNK MG, QD
     Route: 048
     Dates: start: 20070516, end: 20070520
  2. LOFTON [Concomitant]
     Dosage: 300 MG, QD
     Route: 048
  3. MODURETIC 5-50 [Suspect]
     Active Substance: AMILORIDE HYDROCHLORIDE\HYDROCHLOROTHIAZIDE
     Indication: DEMENTIA
     Dosage: 100 MG, QD
     Route: 048
  4. RISPERDAL [Suspect]
     Active Substance: RISPERIDONE
     Indication: SENILE DEMENTIA
     Dosage: 0.5 ML, UNK
     Route: 048
     Dates: end: 20070514
  5. ADIRO [Concomitant]
     Active Substance: ASPIRIN
     Dosage: 100 MG, QD
     Route: 048
  6. ZINNAT [Suspect]
     Active Substance: CEFUROXIME AXETIL
     Indication: PYREXIA
     Dosage: 1 G, QID
     Dates: start: 20070519, end: 20070520
  7. PROMETAX [Concomitant]
     Active Substance: RIVASTIGMINE
     Indication: SENILE DEMENTIA
     Dosage: 12 MG, QD
     Route: 048
  8. NEUPRO [Suspect]
     Active Substance: ROTIGOTINE
     Indication: PARKINSON^S DISEASE
     Dosage: 2 MG, UNK
     Dates: start: 20070514, end: 20070520
  9. PRILOSEC [Concomitant]
     Active Substance: OMEPRAZOLE MAGNESIUM
     Dosage: 20 MG, QD
     Route: 048

REACTIONS (3)
  - Constipation [Recovered/Resolved with Sequelae]
  - Hyponatraemia [Recovered/Resolved with Sequelae]
  - Antidiuretic hormone abnormality [Recovered/Resolved with Sequelae]

NARRATIVE: CASE EVENT DATE: 20070520
